FAERS Safety Report 7817187-0 (Version None)
Quarter: 2011Q4

REPORT INFORMATION
  Report Type: 
  Country: None (occurrence: None)
  Receive Date: 20111017
  Receipt Date: 20111017
  Transmission Date: 20120403
  Serious: No
  Sender: FDA-Public Use
  Company Number: None

PATIENT
  Age: 84 Year
  Weight: 74.842 kg

DRUGS (1)
  1. ZOLPIDEM [Suspect]
     Indication: INSOMNIA
     Dosage: ONE TABLET
     Route: 048
     Dates: start: 20110124, end: 20110823

REACTIONS (5)
  - WEIGHT INCREASED [None]
  - MALAISE [None]
  - PHARYNGEAL OEDEMA [None]
  - PSYCHOTIC BEHAVIOUR [None]
  - DEPRESSION [None]
